FAERS Safety Report 13449646 (Version 1)
Quarter: 2017Q2

REPORT INFORMATION
  Report Type: Spontaneous
  Country: US (occurrence: US)
  Receive Date: 20170417
  Receipt Date: 20170417
  Transmission Date: 20170830
  Serious: Yes (Other)
  Sender: FDA-Public Use
  Company Number: US-ROCHE-1915809

PATIENT
  Age: 49 Year
  Sex: Female
  Weight: 76.27 kg

DRUGS (3)
  1. TECENTRIQ [Suspect]
     Active Substance: ATEZOLIZUMAB
     Indication: BLADDER CANCER STAGE IV
     Dosage: NEXT DOSES RECEIVED ON 9-MAR-2017 AND 30-MAR-2017
     Route: 065
     Dates: start: 20170222
  2. MORPHINE [Concomitant]
     Active Substance: MORPHINE
     Indication: PAIN
     Route: 065
  3. TRAMADOL. [Concomitant]
     Active Substance: TRAMADOL
     Indication: NEURALGIA
     Dosage: UNKNOWN
     Route: 065

REACTIONS (9)
  - Nerve compression [Not Recovered/Not Resolved]
  - Inflammation [Not Recovered/Not Resolved]
  - Back pain [Not Recovered/Not Resolved]
  - Oropharyngeal pain [Recovered/Resolved]
  - Neuralgia [Not Recovered/Not Resolved]
  - Pyrexia [Recovered/Resolved]
  - Joint range of motion decreased [Not Recovered/Not Resolved]
  - Pain [Not Recovered/Not Resolved]
  - Influenza like illness [Recovered/Resolved]

NARRATIVE: CASE EVENT DATE: 20170222
